FAERS Safety Report 9321198 (Version 2)
Quarter: 2013Q2

REPORT INFORMATION
  Report Type: Spontaneous
  Country: ES (occurrence: ES)
  Receive Date: 20130531
  Receipt Date: 20130610
  Transmission Date: 20140414
  Serious: Yes (Other)
  Sender: FDA-Public Use
  Company Number: ES-UCBSA-087175

PATIENT
  Age: 38 Year
  Sex: Male
  Weight: 72 kg

DRUGS (3)
  1. VIMPAT [Suspect]
     Indication: EPILEPSY
     Route: 048
     Dates: start: 20130515, end: 20130515
  2. KEPPRA [Concomitant]
     Indication: EPILEPSY
     Dosage: DAILY DOSE-2000 MG
     Route: 048
     Dates: start: 201105
  3. ZEBENIX [Concomitant]
     Indication: EPILEPSY
     Dosage: DAILY DOSE-1.2 MG
     Route: 048
     Dates: start: 201205

REACTIONS (1)
  - Dermatitis allergic [Recovered/Resolved]
